FAERS Safety Report 8230247-8 (Version None)
Quarter: 2012Q1

REPORT INFORMATION
  Report Type: 
  Country: None (occurrence: None)
  Receive Date: 20120307
  Receipt Date: 20090727
  Transmission Date: 20120608
  Serious: Yes (Hospitalization)
  Sender: FDA-Public Use
  Company Number: PHEH2009US07023

PATIENT
  Age: 59 Year
  Sex: Male
  Weight: 96.1 kg

DRUGS (2)
  1. AFINITOR [Suspect]
     Indication: METASTATIC RENAL CELL CARCINOMA
     Dosage: 10 MG, QD, ORAL ; 10 MG EVERY OTHER DAY, ORAL
     Route: 048
     Dates: end: 20090616
  2. AFINITOR [Suspect]
     Indication: METASTATIC RENAL CELL CARCINOMA
     Dosage: 10 MG, QD, ORAL ; 10 MG EVERY OTHER DAY, ORAL
     Route: 048
     Dates: start: 20090514, end: 20090615

REACTIONS (5)
  - DYSPNOEA [None]
  - BLOOD UREA INCREASED [None]
  - STOMATITIS [None]
  - BLOOD CREATININE INCREASED [None]
  - BLOOD CALCIUM INCREASED [None]
